FAERS Safety Report 15673800 (Version 1)
Quarter: 2018Q4

REPORT INFORMATION
  Report Type: Spontaneous
  Country: US (occurrence: US)
  Receive Date: 20181129
  Receipt Date: 20181129
  Transmission Date: 20190205
  Serious: Yes (Other)
  Sender: FDA-Public Use
  Company Number: US-FRESENIUS KABI-FK201812118

PATIENT
  Age: 36 Year
  Sex: Female

DRUGS (3)
  1. OXYTOCIN INJECTION (MANUFACTURER UNKNOWN) [Suspect]
     Active Substance: OXYTOCIN
     Indication: PRODUCT USED FOR UNKNOWN INDICATION
     Dosage: 30 UNITS IN 500 ML SODIUM CHLORIDE
     Route: 065
  2. METHYLERGOMETRINE MALEATE [Suspect]
     Active Substance: METHYLERGONOVINE MALEATE
     Indication: POSTPARTUM HAEMORRHAGE
     Route: 030
  3. MISOPROSTOL. [Suspect]
     Active Substance: MISOPROSTOL
     Indication: UTERINE ATONY
     Route: 002

REACTIONS (2)
  - Acute pulmonary oedema [Recovered/Resolved]
  - Hypertension [Recovered/Resolved]
